FAERS Safety Report 8007446-3 (Version None)
Quarter: 2011Q4

REPORT INFORMATION
  Report Type: 
  Country: None (occurrence: None)
  Receive Date: 20111227
  Receipt Date: 20111222
  Transmission Date: 20120403
  Serious: Yes (Hospitalization, Congenital Anomaly, Other)
  Sender: FDA-Public Use
  Company Number: US-PFIZER INC-2011077285

PATIENT
  Sex: Female
  Weight: 3 kg

DRUGS (4)
  1. MULTI-VITAMINS [Concomitant]
     Dosage: UNK
     Route: 064
     Dates: start: 20100920
  2. SERTRALINE HYDROCHLORIDE [Suspect]
     Dosage: 30 TABLETS FOR 30 DAYS
     Route: 064
     Dates: start: 20100312
  3. ZOLOFT [Suspect]
     Dosage: UNK
     Route: 064
  4. TRICHLOROACETIC ACID [Concomitant]
     Dosage: UNK
     Route: 064
     Dates: start: 20100630

REACTIONS (7)
  - VENTRICULAR SEPTAL DEFECT [None]
  - FOETAL EXPOSURE DURING PREGNANCY [None]
  - CONGENITAL PULMONARY HYPERTENSION [None]
  - ATRIAL SEPTAL DEFECT [None]
  - ANAL ATRESIA [None]
  - PATENT DUCTUS ARTERIOSUS [None]
  - JAUNDICE NEONATAL [None]
